FAERS Safety Report 21098482 (Version 2)
Quarter: 2022Q3

REPORT INFORMATION
  Report Type: Spontaneous
  Country: DE (occurrence: DE)
  Receive Date: 20220719
  Receipt Date: 20220802
  Transmission Date: 20221027
  Serious: Yes (Hospitalization, Other)
  Sender: FDA-Public Use
  Company Number: DE-MYLANLABS-2022M1079203

PATIENT
  Age: 63 Year
  Sex: Male

DRUGS (13)
  1. CLOZAPINE [Interacting]
     Active Substance: CLOZAPINE
     Indication: Schizophrenia
     Dosage: DOSES RANGING 100-650 MG/DAY
     Route: 065
     Dates: start: 2013
  2. CLOZAPINE [Interacting]
     Active Substance: CLOZAPINE
     Dosage: 850 MILLIGRAM, QD
     Route: 065
  3. CARIPRAZINE [Interacting]
     Active Substance: CARIPRAZINE
     Indication: Schizophrenia
     Dosage: 1.5 MILLIGRAM, QD
     Route: 065
  4. CARIPRAZINE [Interacting]
     Active Substance: CARIPRAZINE
     Dosage: 3 MILLIGRAM, QD (DOSE INCREASED))
     Route: 065
  5. CARIPRAZINE [Interacting]
     Active Substance: CARIPRAZINE
     Dosage: 1.5 MILLIGRAM, QD (DOSE REDUCED ON DAY 12 AND DISCONTINUED ON DAY 18)
     Route: 065
  6. MIRTAZAPINE [Concomitant]
     Active Substance: MIRTAZAPINE
     Indication: Schizophrenia
     Dosage: 30 MILLIGRAM, QD
     Route: 065
  7. MIRTAZAPINE [Concomitant]
     Active Substance: MIRTAZAPINE
     Dosage: 45 MILLIGRAM, QD
     Route: 065
  8. VALPROIC ACID [Concomitant]
     Active Substance: VALPROIC ACID
     Indication: Schizophrenia
     Dosage: 2000 MILLIGRAM, QD
     Route: 065
  9. VALPROIC ACID [Concomitant]
     Active Substance: VALPROIC ACID
     Dosage: 2300 MILLIGRAM, QD
     Route: 065
  10. AMISULPRIDE [Concomitant]
     Active Substance: AMISULPRIDE
     Indication: Schizophrenia
     Dosage: 200 MILLIGRAM, QD
     Route: 065
  11. AMISULPRIDE [Concomitant]
     Active Substance: AMISULPRIDE
     Dosage: UNK, DOSE DECREASED AND THEN DISCONTINUED
     Route: 065
  12. PIPAMPERONE [Concomitant]
     Active Substance: PIPAMPERONE
     Indication: Schizophrenia
     Dosage: 140 MILLIGRAM, QD
     Route: 065
  13. PIRENZEPINE [Concomitant]
     Active Substance: PIRENZEPINE
     Indication: Schizophrenia
     Dosage: 100 MILLIGRAM, QD
     Route: 065

REACTIONS (4)
  - Drug level increased [Recovered/Resolved]
  - Drug interaction [Recovered/Resolved]
  - Pleurothotonus [Recovered/Resolved]
  - Drug ineffective [Unknown]
